FAERS Safety Report 9675519 (Version 1)
Quarter: 2013Q4

REPORT INFORMATION
  Report Type: Spontaneous
  Country: US (occurrence: US)
  Receive Date: 20131107
  Receipt Date: 20131107
  Transmission Date: 20140711
  Serious: Yes (Hospitalization)
  Sender: FDA-Public Use
  Company Number: US-MYLANLABS-2013S1024380

PATIENT
  Age: 71 Year
  Sex: Female

DRUGS (1)
  1. BACLOFEN [Suspect]
     Route: 048

REACTIONS (9)
  - Withdrawal syndrome [Recovering/Resolving]
  - Agitation [Recovering/Resolving]
  - Confusional state [Recovering/Resolving]
  - Hyperthermia [Unknown]
  - Tremor [Unknown]
  - Muscle rigidity [Unknown]
  - Clonus [Unknown]
  - Lethargy [Unknown]
  - Myocardial infarction [Unknown]
